FAERS Safety Report 19007189 (Version 1)
Quarter: 2021Q1

REPORT INFORMATION
  Report Type: Spontaneous
  Country: US (occurrence: US)
  Receive Date: 20210313
  Receipt Date: 20210313
  Transmission Date: 20210420
  Serious: No
  Sender: FDA-Public Use
  Company Number: None

PATIENT
  Age: 4 Year
  Sex: Female

DRUGS (1)
  1. NEULASTA [Suspect]
     Active Substance: PEGFILGRASTIM
     Indication: ADRENAL GLAND CANCER
     Dosage: OTHER FREQUENCY:EVERY 3 WEEKS ; UNDER THE SKIN?
     Route: 058
     Dates: start: 202002

REACTIONS (2)
  - Pyrexia [None]
  - Full blood count decreased [None]

NARRATIVE: CASE EVENT DATE: 20210218
